FAERS Safety Report 5775122-3 (Version None)
Quarter: 2008Q2

REPORT INFORMATION
  Report Type: 
  Country: None (occurrence: None)
  Receive Date: 20080617
  Receipt Date: 20080609
  Transmission Date: 20081010
  Serious: Yes (Death)
  Sender: FDA-Public Use
  Company Number: US-NOVOPROD-276120

PATIENT

DRUGS (5)
  1. NOVOSEVEN [Suspect]
     Indication: FACTOR X DEFICIENCY
  2. FRESH FROZEN PLASMA [Concomitant]
  3. TRANEXAMIC ACID [Concomitant]
  4. DANAZOL [Concomitant]
  5. AMINOCAPROIC ACID [Concomitant]

REACTIONS (1)
  - DRUG INEFFECTIVE [None]
